FAERS Safety Report 11215277 (Version 2)
Quarter: 2015Q3

REPORT INFORMATION
  Report Type: Spontaneous
  Country: US (occurrence: US)
  Receive Date: 20150624
  Receipt Date: 20150819
  Transmission Date: 20151125
  Serious: No
  Sender: FDA-Public Use
  Company Number: US-PFIZER INC-2015207346

PATIENT
  Age: 64 Year
  Sex: Female
  Weight: 90.7 kg

DRUGS (1)
  1. GABAPENTIN. [Suspect]
     Active Substance: GABAPENTIN
     Indication: CYSTITIS INTERSTITIAL
     Dosage: 100 MG, 3X/DAY
     Route: 048

REACTIONS (3)
  - Product use issue [Unknown]
  - Somnolence [Unknown]
  - Fatigue [Unknown]
